FAERS Safety Report 15057610 (Version 1)
Quarter: 2018Q2

REPORT INFORMATION
  Report Type: Spontaneous
  Country: US (occurrence: US)
  Receive Date: 20180625
  Receipt Date: 20180625
  Transmission Date: 20180711
  Serious: No
  Sender: FDA-Public Use
  Company Number: US-BRISTOL-MYERS SQUIBB COMPANY-BMS-2018-058045

PATIENT
  Sex: Female

DRUGS (1)
  1. PRAVASTATIN SODIUM. [Suspect]
     Active Substance: PRAVASTATIN SODIUM
     Indication: PRODUCT USED FOR UNKNOWN INDICATION
     Route: 065

REACTIONS (6)
  - Abdominal pain upper [Recovered/Resolved]
  - Hepatic enzyme increased [Recovered/Resolved]
  - Constipation [Recovered/Resolved]
  - Swelling [Recovered/Resolved]
  - Blood cholesterol increased [Recovered/Resolved]
  - Drug ineffective [Recovered/Resolved]
